FAERS Safety Report 4495272-1 (Version None)
Quarter: 2004Q4

REPORT INFORMATION
  Report Type: 
  Country: None (occurrence: None)
  Receive Date: 20041108
  Receipt Date: 20040819
  Transmission Date: 20050328
  Serious: No
  Sender: FDA-Public Use
  Company Number: US-GLAXOSMITHKLINE-A0522804A

PATIENT

DRUGS (1)
  1. AVANDAMET [Suspect]

REACTIONS (1)
  - GASTROINTESTINAL DISORDER [None]
